FAERS Safety Report 18866726 (Version 1)
Quarter: 2021Q1

REPORT INFORMATION
  Report Type: Report from Study
  Country: None (occurrence: US)
  Receive Date: 20210208
  Receipt Date: 20210208
  Transmission Date: 20210420
  Serious: Yes (Other)
  Sender: FDA-Public Use
  Company Number: US-ABBVIE-20K-163-3508625-00

PATIENT
  Age: 62 Year
  Sex: Female

DRUGS (3)
  1. HUMIRA [Suspect]
     Active Substance: ADALIMUMAB
     Indication: COLITIS ULCERATIVE
     Route: 058
     Dates: start: 20200819
  2. HUMIRA [Suspect]
     Active Substance: ADALIMUMAB
     Indication: COLITIS ULCERATIVE
     Dosage: DAY 1
     Route: 058
     Dates: start: 20200722, end: 20200722
  3. HUMIRA [Suspect]
     Active Substance: ADALIMUMAB
     Dosage: DAY 15
     Route: 058
     Dates: start: 20200805, end: 20200805

REACTIONS (32)
  - Insomnia [Not Recovered/Not Resolved]
  - Inflammation [Unknown]
  - Fungal infection [Unknown]
  - SARS-CoV-2 test positive [Unknown]
  - Depressed mood [Unknown]
  - Nausea [Not Recovered/Not Resolved]
  - Discomfort [Unknown]
  - Abdominal pain upper [Not Recovered/Not Resolved]
  - Headache [Unknown]
  - Sinus congestion [Not Recovered/Not Resolved]
  - Abnormal faeces [Not Recovered/Not Resolved]
  - Malaise [Unknown]
  - Bacterial infection [Unknown]
  - Bronchial disorder [Unknown]
  - Decreased appetite [Not Recovered/Not Resolved]
  - Anosmia [Unknown]
  - Haematochezia [Unknown]
  - Injection site bruising [Recovered/Resolved]
  - Hypersensitivity [Not Recovered/Not Resolved]
  - Rash [Unknown]
  - Ocular discomfort [Unknown]
  - Cough [Unknown]
  - Flatulence [Unknown]
  - Body temperature abnormal [Unknown]
  - Diarrhoea [Not Recovered/Not Resolved]
  - Faeces soft [Unknown]
  - Dyspnoea [Unknown]
  - Fatigue [Not Recovered/Not Resolved]
  - Nausea [Not Recovered/Not Resolved]
  - Injection site haemorrhage [Recovered/Resolved]
  - Vomiting [Not Recovered/Not Resolved]
  - Injection site bruising [Recovered/Resolved]

NARRATIVE: CASE EVENT DATE: 2020
